FAERS Safety Report 7993224-8 (Version None)
Quarter: 2011Q4

REPORT INFORMATION
  Report Type: 
  Country: None (occurrence: None)
  Receive Date: 20111219
  Receipt Date: 20110916
  Transmission Date: 20120403
  Serious: No
  Sender: FDA-Public Use
  Company Number: US-ASTRAZENECA-2011SE56001

PATIENT
  Sex: Male

DRUGS (1)
  1. CRESTOR [Suspect]
     Dosage: 1 TABLET EVERY TWO DAYS
     Route: 048
     Dates: start: 20110101

REACTIONS (4)
  - PAIN IN EXTREMITY [None]
  - NECK PAIN [None]
  - MUSCULOSKELETAL PAIN [None]
  - MYALGIA [None]
